FAERS Safety Report 16782700 (Version 1)
Quarter: 2019Q3

REPORT INFORMATION
  Report Type: Spontaneous
  Country: US (occurrence: US)
  Receive Date: 20190906
  Receipt Date: 20190906
  Transmission Date: 20191005
  Serious: No
  Sender: FDA-Public Use
  Company Number: US-SA-2019SA244327

PATIENT
  Sex: Male
  Weight: 79.37 kg

DRUGS (2)
  1. HALOG [Suspect]
     Active Substance: HALCINONIDE
     Dosage: UNK
  2. DUPIXENT [Suspect]
     Active Substance: DUPILUMAB
     Indication: DERMATITIS ATOPIC
     Dosage: 300 MG, QOW UNDER THE SKIN
     Dates: start: 20190701

REACTIONS (2)
  - Acne [Unknown]
  - Dermatitis [Unknown]
